FAERS Safety Report 6506628-7 (Version None)
Quarter: 2009Q4

REPORT INFORMATION
  Report Type: 
  Country: None (occurrence: None)
  Receive Date: 20091221
  Receipt Date: 20091209
  Transmission Date: 20100525
  Serious: Yes (Other)
  Sender: FDA-Public Use
  Company Number: JP-ROCHE-649124

PATIENT
  Sex: Female
  Weight: 42 kg

DRUGS (2)
  1. XELODA [Suspect]
     Indication: RECTAL CANCER METASTATIC
     Dosage: DRUG NAME: XELODA 300
     Route: 048
     Dates: start: 20090616, end: 20090718
  2. XELODA [Suspect]
     Route: 048
     Dates: start: 20090727

REACTIONS (1)
  - VISUAL ACUITY REDUCED [None]
